FAERS Safety Report 19791968 (Version 2)
Quarter: 2022Q1

REPORT INFORMATION
  Report Type: Spontaneous
  Country: IE (occurrence: IE)
  Receive Date: 20210906
  Receipt Date: 20220304
  Transmission Date: 20220423
  Serious: Yes (Other)
  Sender: FDA-Public Use
  Company Number: IE-SUN PHARMACEUTICAL INDUSTRIES LTD-2021R1-308305

PATIENT
  Age: 66 Year
  Sex: Female

DRUGS (1)
  1. DOBUTAMINE [Suspect]
     Active Substance: DOBUTAMINE HYDROCHLORIDE
     Indication: Cardiogenic shock
     Dosage: 5 MCG/KG/MIN
     Route: 042

REACTIONS (3)
  - Atrial fibrillation [Unknown]
  - Condition aggravated [Unknown]
  - Cardiogenic shock [Unknown]
